FAERS Safety Report 7536523-6 (Version None)
Quarter: 2011Q2

REPORT INFORMATION
  Report Type: 
  Country: None (occurrence: None)
  Receive Date: 20110609
  Receipt Date: 20101115
  Transmission Date: 20111010
  Serious: No
  Sender: FDA-Public Use
  Company Number: US-ABBOTT-10P-163-0685948-00

PATIENT
  Sex: Female

DRUGS (1)
  1. K-TAB [Suspect]
     Indication: BLOOD POTASSIUM DECREASED
     Dates: start: 20100501

REACTIONS (3)
  - BLOOD POTASSIUM DECREASED [None]
  - DRUG INEFFECTIVE [None]
  - MEDICATION RESIDUE [None]
